FAERS Safety Report 10195782 (Version 2)
Quarter: 2014Q3

REPORT INFORMATION
  Report Type: Spontaneous
  Country: US (occurrence: US)
  Receive Date: 20140527
  Receipt Date: 20140912
  Transmission Date: 20150326
  Serious: Yes (Other)
  Sender: FDA-Public Use
  Company Number: US-AMGEN-USASP2014038459

PATIENT
  Age: 56 Year
  Sex: Female

DRUGS (1)
  1. ENBREL [Suspect]
     Active Substance: ETANERCEPT
     Indication: ANKYLOSING SPONDYLITIS
     Dosage: 50 MG, QWK
     Route: 065
     Dates: start: 20060611, end: 201407

REACTIONS (9)
  - Pain in extremity [Not Recovered/Not Resolved]
  - White blood cells urine positive [Recovered/Resolved]
  - Fibula fracture [Recovered/Resolved]
  - Blood urine present [Recovered/Resolved]
  - Sinus headache [Recovered/Resolved]
  - Mucosal dryness [Recovered/Resolved]
  - Nasal discharge discolouration [Recovered/Resolved]
  - Arthralgia [Not Recovered/Not Resolved]
  - Fall [Recovered/Resolved]

NARRATIVE: CASE EVENT DATE: 20131006
